FAERS Safety Report 9965747 (Version 1)
Quarter: 2014Q1

REPORT INFORMATION
  Report Type: Report from Study
  Country: US (occurrence: US)
  Receive Date: 20140305
  Receipt Date: 20140305
  Transmission Date: 20141002
  Serious: No
  Sender: FDA-Public Use
  Company Number: US-ABBVIE-13P-163-1123432-00

PATIENT
  Age: 48 Year
  Sex: Female

DRUGS (5)
  1. HUMIRA [Suspect]
     Indication: PSORIASIS
     Dates: start: 200906
  2. CELEXA [Concomitant]
     Indication: DEPRESSION
  3. CYCLOBENZAPRINE [Concomitant]
     Indication: FIBROMYALGIA
  4. GABAPENTIN [Concomitant]
     Indication: FIBROMYALGIA
     Dosage: 1-3 TIMES A DAY
  5. GABAPENTIN [Concomitant]
     Indication: ARTHRALGIA

REACTIONS (2)
  - Pyrexia [Not Recovered/Not Resolved]
  - Headache [Not Recovered/Not Resolved]
